FAERS Safety Report 24569384 (Version 2)
Quarter: 2024Q4

REPORT INFORMATION
  Report Type: Report from Study
  Country: US (occurrence: US)
  Receive Date: 20241031
  Receipt Date: 20241114
  Transmission Date: 20250115
  Serious: No
  Sender: AGIOS PHARMACEUTICALS
  Company Number: US-AGIOS-2410US03934

PATIENT
  Sex: Male

DRUGS (1)
  1. MITAPIVAT [Suspect]
     Active Substance: MITAPIVAT
     Indication: Pyruvate kinase deficiency anaemia
     Dosage: 50 MILLIGRAM
     Route: 065
     Dates: start: 20220501

REACTIONS (3)
  - Increased appetite [Unknown]
  - Weight increased [Unknown]
  - Ocular icterus [Unknown]
